FAERS Safety Report 21338011 (Version 1)
Quarter: 2022Q3

REPORT INFORMATION
  Report Type: Spontaneous
  Country: US (occurrence: None)
  Receive Date: 20220915
  Receipt Date: 20220915
  Transmission Date: 20221027
  Serious: No
  Sender: FDA-Public Use
  Company Number: None

PATIENT
  Age: 55 Year
  Sex: Male
  Weight: 36.29 kg

DRUGS (1)
  1. ELIGARD [Suspect]
     Active Substance: LEUPROLIDE ACETATE
     Indication: Prostate cancer
     Dosage: OTHER FREQUENCY : ONCE EVERY 6 MONTH;?
     Route: 030
     Dates: start: 202007

REACTIONS (15)
  - Impaired quality of life [None]
  - Fibromyalgia [None]
  - Depression [None]
  - Economic problem [None]
  - Blood glucose increased [None]
  - Blood cholesterol increased [None]
  - Anaemia [None]
  - Fatigue [None]
  - Hypotension [None]
  - Amnesia [None]
  - Attention deficit hyperactivity disorder [None]
  - Diabetic neuropathy [None]
  - Vertigo [None]
  - Loss of personal independence in daily activities [None]
  - Family stress [None]
